FAERS Safety Report 4614102-8 (Version None)
Quarter: 2005Q1

REPORT INFORMATION
  Report Type: 
  Country: None (occurrence: None)
  Receive Date: 20050316
  Receipt Date: 20050301
  Transmission Date: 20050727
  Serious: Yes (Other)
  Sender: FDA-Public Use
  Company Number: DSA_70596_2005

PATIENT
  Age: 90 Year
  Sex: Female

DRUGS (4)
  1. DARVOCET-N 100 [Suspect]
     Indication: PAIN
     Dosage: 1 DF QDAY PO
     Route: 048
     Dates: start: 19800101
  2. TYLENOL ^JOHNSON + JOHNSON^ [Suspect]
     Indication: PAIN
     Dosage: 1000 MG BID PO
     Route: 048
     Dates: start: 19800101
  3. RISPERDAL [Concomitant]
  4. MEPERIDONE [Concomitant]

REACTIONS (1)
  - MENTAL STATUS CHANGES [None]
